FAERS Safety Report 9484432 (Version 2)
Quarter: 2013Q3

REPORT INFORMATION
  Report Type: Spontaneous
  Country: CA (occurrence: CA)
  Receive Date: 20130828
  Receipt Date: 20130828
  Transmission Date: 20140515
  Serious: Yes (Hospitalization)
  Sender: FDA-Public Use
  Company Number: CA-AMGEN-KDL399836

PATIENT
  Age: 74 Year
  Sex: Male
  Weight: 84 kg

DRUGS (12)
  1. ENBREL [Suspect]
     Indication: RHEUMATOID ARTHRITIS
     Dosage: UNK UNK, QWK
     Route: 065
     Dates: start: 20090831
  2. METHOTREXATE [Concomitant]
     Dosage: UNK UNK, UNK
     Route: 048
     Dates: end: 20100305
  3. PREDNISONE [Concomitant]
     Dosage: UNK UNK, QID
  4. CELECOXIB [Concomitant]
  5. LEVOTHRYROXINE SODIUM [Concomitant]
  6. MONTELUKAST [Concomitant]
  7. ESOMEPRAZOLE MAGNESIUM [Concomitant]
  8. NITRAZEPAM [Concomitant]
  9. COLCHICINE [Concomitant]
  10. HYDROCHLOROTHIAZIDE [Concomitant]
  11. FOLIC ACID [Concomitant]
  12. METOPROLOL [Concomitant]

REACTIONS (6)
  - Paralysis [Unknown]
  - Blood pressure abnormal [Unknown]
  - Blood potassium abnormal [Unknown]
  - Confusional state [Unknown]
  - Asthenia [Unknown]
  - Asthma [Unknown]
